FAERS Safety Report 10521931 (Version 2)
Quarter: 2014Q4

REPORT INFORMATION
  Report Type: Report from Study
  Country: TW (occurrence: TW)
  Receive Date: 20141016
  Receipt Date: 20141124
  Transmission Date: 20150528
  Serious: Yes (Death)
  Sender: FDA-Public Use
  Company Number: TW-ABBVIE-14K-153-1294522-00

PATIENT
  Age: 74 Year
  Sex: Female
  Weight: 52 kg

DRUGS (1)
  1. HUMIRA [Suspect]
     Active Substance: ADALIMUMAB
     Indication: PSORIASIS
     Route: 058
     Dates: start: 20121129, end: 20140926

REACTIONS (5)
  - Lower respiratory tract inflammation [Fatal]
  - Subarachnoid haemorrhage [Fatal]
  - Brain midline shift [Fatal]
  - Arteriosclerosis coronary artery [Fatal]
  - Lung infiltration [Fatal]

NARRATIVE: CASE EVENT DATE: 20141007
